FAERS Safety Report 7153161-8 (Version None)
Quarter: 2010Q4

REPORT INFORMATION
  Report Type: 
  Country: None (occurrence: None)
  Receive Date: 20101208
  Receipt Date: 20101208
  Transmission Date: 20110411
  Serious: Yes (Death)
  Sender: FDA-Public Use
  Company Number: None

PATIENT
  Age: 55 Year
  Sex: Female

DRUGS (9)
  1. REVLIMID [Suspect]
     Indication: MULTIPLE MYELOMA
     Dosage: 25MG DAILY 21D/28D ORALLY
     Route: 048
     Dates: start: 20090401, end: 20090601
  2. REVLIMID [Suspect]
     Indication: MULTIPLE MYELOMA
     Dosage: 25MG DAILY 21D/28D ORALLY
     Route: 048
     Dates: start: 20091201, end: 20100501
  3. REVLIMID [Concomitant]
  4. DEXAMETHASONE [Concomitant]
  5. PROCRIT [Concomitant]
  6. FLECERIL [Concomitant]
  7. DRONABINOL [Concomitant]
  8. MORPHINE SULFATE [Concomitant]
  9. ATENOLOL [Concomitant]

REACTIONS (2)
  - REFUSAL OF TREATMENT BY PATIENT [None]
  - TREATMENT NONCOMPLIANCE [None]
